FAERS Safety Report 4335411-6 (Version None)
Quarter: 2004Q2

REPORT INFORMATION
  Report Type: 
  Country: None (occurrence: None)
  Receive Date: 20040409
  Receipt Date: 20040309
  Transmission Date: 20050107
  Serious: No
  Sender: FDA-Public Use
  Company Number: 200410847JP

PATIENT
  Age: 69 Year
  Sex: Female
  Weight: 65 kg

DRUGS (6)
  1. ARAVA [Suspect]
     Indication: RHEUMATOID ARTHRITIS
     Route: 048
     Dates: start: 20040203, end: 20040306
  2. RHEUMATREX [Concomitant]
     Dosage: DOSE: 3MG/WEEK
     Route: 048
     Dates: start: 20031125, end: 20040202
  3. PREDNISOLONE [Concomitant]
     Indication: RHEUMATOID ARTHRITIS
     Route: 048
     Dates: start: 20031028, end: 20040306
  4. ROCALTROL [Concomitant]
     Indication: OSTEOPOROSIS
     Route: 048
     Dates: start: 19990831
  5. ETODOLAC [Concomitant]
     Indication: PAIN
     Route: 048
     Dates: start: 20030819
  6. MUCOSTA [Concomitant]
     Indication: GASTROINTESTINAL DISORDER
     Route: 048
     Dates: start: 20030819

REACTIONS (2)
  - CHEST DISCOMFORT [None]
  - HAEMOPTYSIS [None]
